FAERS Safety Report 14039248 (Version 1)
Quarter: 2017Q4

REPORT INFORMATION
  Report Type: Spontaneous
  Country: US (occurrence: US)
  Receive Date: 20171004
  Receipt Date: 20171004
  Transmission Date: 20180321
  Serious: No
  Sender: FDA-Public Use
  Company Number: US-INDIVIOR LIMITED-INDV-098810-2017

PATIENT
  Age: 61 Year
  Sex: Female

DRUGS (8)
  1. SUBOXONE [Suspect]
     Active Substance: BUPRENORPHINE HYDROCHLORIDE\NALOXONE HYDROCHLORIDE
     Indication: BACK PAIN
     Dosage: 3MG TWICE DAILY
     Route: 060
     Dates: start: 20160121, end: 201604
  2. NEURONTIN [Concomitant]
     Active Substance: GABAPENTIN
     Indication: NERVE INJURY
  3. SUBUTEX [Suspect]
     Active Substance: BUPRENORPHINE HYDROCHLORIDE
     Indication: BACK PAIN
     Dosage: 1/4TH FILM TWO TIMES A DAY
     Route: 065
     Dates: start: 20160429, end: 20160608
  4. SUBUTEX [Suspect]
     Active Substance: BUPRENORPHINE HYDROCHLORIDE
     Dosage: UNK
     Route: 065
     Dates: start: 20160611, end: 2016
  5. NEURONTIN [Concomitant]
     Active Substance: GABAPENTIN
     Indication: JOINT INJURY
     Dosage: 300 MG, TID
     Route: 048
  6. SUBOXONE [Suspect]
     Active Substance: BUPRENORPHINE HYDROCHLORIDE\NALOXONE HYDROCHLORIDE
     Indication: BACK PAIN
     Dosage: 0.5MG TWICE DAILY
     Route: 060
     Dates: start: 20151228, end: 201601
  7. SUBOXONE [Suspect]
     Active Substance: BUPRENORPHINE HYDROCHLORIDE\NALOXONE HYDROCHLORIDE
     Dosage: 3MG TWICE DAILY
     Route: 060
     Dates: start: 201606, end: 201606
  8. NORCO [Suspect]
     Active Substance: ACETAMINOPHEN\HYDROCODONE BITARTRATE
     Indication: PRODUCT USED FOR UNKNOWN INDICATION
     Dosage: 325/10MG UNK
     Route: 065

REACTIONS (21)
  - Paraesthesia oral [Unknown]
  - Substance abuse [Recovered/Resolved]
  - Gingival swelling [Unknown]
  - Product preparation error [Recovered/Resolved]
  - Drug dependence [Unknown]
  - Off label use [Unknown]
  - Fibrosis [Unknown]
  - Hyperkeratosis [Not Recovered/Not Resolved]
  - Tongue blistering [Unknown]
  - Oral mucosal blistering [Unknown]
  - Gingival ulceration [Unknown]
  - Therapy cessation [Recovered/Resolved]
  - Gingival pain [Unknown]
  - Product use issue [Recovered/Resolved]
  - Lip blister [Not Recovered/Not Resolved]
  - Intentional underdose [Recovered/Resolved]
  - Drug abuse [Unknown]
  - Immune system disorder [Not Recovered/Not Resolved]
  - Noninfective gingivitis [Recovering/Resolving]
  - Oral pain [Unknown]
  - Insomnia [Unknown]

NARRATIVE: CASE EVENT DATE: 2016
